FAERS Safety Report 9593884 (Version 1)
Quarter: 2013Q4

REPORT INFORMATION
  Report Type: Spontaneous
  Country: US (occurrence: US)
  Receive Date: 20131004
  Receipt Date: 20131004
  Transmission Date: 20140711
  Serious: Yes (Other)
  Sender: FDA-Public Use
  Company Number: US-BAYER-2013-118123

PATIENT
  Age: 34 Year
  Sex: Female

DRUGS (13)
  1. NAPROXEN SODIUM ({= 220 MG) [Suspect]
     Indication: ARTHRALGIA
     Dosage: UNK UNK, PRN
  2. NAPROXEN SODIUM ({= 220 MG) [Suspect]
     Indication: SYSTEMIC LUPUS ERYTHEMATOSUS
  3. PREDNISONE [Concomitant]
     Indication: SYSTEMIC LUPUS ERYTHEMATOSUS
     Dosage: DAILY DOSE 20 MG
  4. PREDNISONE [Concomitant]
     Indication: LUPUS NEPHRITIS
     Dosage: DOSE TAPERED
  5. PREDNISONE [Concomitant]
     Indication: SYSTEMIC LUPUS ERYTHEMATOSUS
     Dosage: DAILY DOSE 5 MG
  6. PREDNISONE [Concomitant]
     Indication: SYSTEMIC LUPUS ERYTHEMATOSUS
     Dosage: DAILY DOSE 60 MG
  7. PREDNISONE [Concomitant]
     Indication: SYSTEMIC LUPUS ERYTHEMATOSUS
     Dosage: DAILY DOSE 2.5 MG
  8. HYDROXYCHLOROQUINE [Concomitant]
     Indication: SYSTEMIC LUPUS ERYTHEMATOSUS
     Dosage: DAILY DOSE 200 MG
  9. HYDROXYCHLOROQUINE [Concomitant]
     Indication: SYSTEMIC LUPUS ERYTHEMATOSUS
     Dosage: DOSE INCREASE
  10. HYDROXYCHLOROQUINE [Concomitant]
     Indication: SYSTEMIC LUPUS ERYTHEMATOSUS
     Dosage: DAILY DOSE 400 MG
  11. MYCOPHENOLATE MOFETIL [Concomitant]
     Indication: LUPUS NEPHRITIS
     Dosage: 1 G, BID
  12. MYCOPHENOLATE MOFETIL [Concomitant]
     Indication: LUPUS NEPHRITIS
     Dosage: 1.5 G, BID
  13. MYCOPHENOLATE MOFETIL [Concomitant]
     Indication: LUPUS NEPHRITIS
     Dosage: 1 G, BID, MAINTENANCE THERAPY

REACTIONS (1)
  - Renal impairment [None]
